FAERS Safety Report 8223530-3 (Version None)
Quarter: 2012Q1

REPORT INFORMATION
  Report Type: 
  Country: None (occurrence: None)
  Receive Date: 20120321
  Receipt Date: 20120316
  Transmission Date: 20120608
  Serious: Yes (Other)
  Sender: FDA-Public Use
  Company Number: US-PFIZER INC-2011307680

PATIENT
  Sex: Female

DRUGS (1)
  1. CHANTIX [Suspect]
     Indication: SMOKING CESSATION THERAPY
     Dosage: UNK
     Dates: start: 20071005, end: 20071201

REACTIONS (8)
  - DIABETES MELLITUS [None]
  - SUICIDAL IDEATION [None]
  - INSOMNIA [None]
  - NIGHTMARE [None]
  - DEPRESSION [None]
  - ANXIETY [None]
  - PANIC ATTACK [None]
  - MENTAL DISORDER [None]
